FAERS Safety Report 11937207 (Version 1)
Quarter: 2016Q1

REPORT INFORMATION
  Report Type: Spontaneous
  Country: US (occurrence: US)
  Receive Date: 20160121
  Receipt Date: 20160121
  Transmission Date: 20160526
  Serious: Yes (Hospitalization, Other)
  Sender: FDA-Public Use
  Company Number: US-DSJP-DSU-2015-120634

PATIENT

DRUGS (1)
  1. BENICAR HCT [Suspect]
     Active Substance: HYDROCHLOROTHIAZIDE\OLMESARTAN MEDOXOMIL
     Indication: HYPERTENSION
     Dosage: 40/25 MG, QD
     Dates: start: 2008

REACTIONS (11)
  - Umbilical hernia repair [Recovering/Resolving]
  - Diverticulum [Unknown]
  - Cholelithiasis [Recovering/Resolving]
  - Malabsorption [Not Recovered/Not Resolved]
  - Hepatic cyst [Unknown]
  - Cholecystectomy [Recovering/Resolving]
  - Hepatic steatosis [Unknown]
  - Irritable bowel syndrome [Unknown]
  - Rectal polyp [Recovered/Resolved]
  - Rectal adenoma [Recovered/Resolved]
  - Renal failure [Unknown]

NARRATIVE: CASE EVENT DATE: 2010
